FAERS Safety Report 17581658 (Version 1)
Quarter: 2020Q1

REPORT INFORMATION
  Report Type: Report from Study
  Country: US (occurrence: US)
  Receive Date: 20200325
  Receipt Date: 20200325
  Transmission Date: 20200409
  Serious: Yes (Other)
  Sender: FDA-Public Use
  Company Number: US-OTSUKA-2020_007539

PATIENT
  Sex: Female

DRUGS (1)
  1. TOLVAPTAN [Suspect]
     Active Substance: TOLVAPTAN
     Indication: CONGENITAL CYSTIC KIDNEY DISEASE
     Dosage: UNK
     Route: 065
     Dates: start: 20200219

REACTIONS (5)
  - Polyuria [Unknown]
  - Malaise [Unknown]
  - Pulmonary congestion [Unknown]
  - Dyspnoea [Unknown]
  - Thirst [Unknown]

NARRATIVE: CASE EVENT DATE: 20200310
